FAERS Safety Report 4509820-6 (Version None)
Quarter: 2004Q4

REPORT INFORMATION
  Report Type: 
  Country: None (occurrence: None)
  Receive Date: 20041119
  Receipt Date: 20041102
  Transmission Date: 20050328
  Serious: Yes (Hospitalization)
  Sender: FDA-Public Use
  Company Number: US_0411107718

PATIENT
  Age: 71 Year
  Sex: Female
  Weight: 62 kg

DRUGS (2)
  1. GEMCITABINE HYDROCHLORIDE-IV (GEMCITABINE) [Suspect]
     Indication: NON-SMALL CELL LUNG CANCER
     Dosage: 1000 MG/M2 OTHER
     Route: 050
     Dates: start: 20041008
  2. PACLITAXEL [Suspect]
     Indication: NON-SMALL CELL LUNG CANCER
     Dosage: 200 MG/M2 OTHER
     Route: 050
     Dates: start: 20041008

REACTIONS (12)
  - ABDOMINAL PAIN [None]
  - BLOOD CREATININE INCREASED [None]
  - BLOOD SODIUM DECREASED [None]
  - BLOOD UREA INCREASED [None]
  - DIFFICULTY IN WALKING [None]
  - DISEASE RECURRENCE [None]
  - FACIAL PALSY [None]
  - HAEMOGLOBIN DECREASED [None]
  - HERPES ZOSTER [None]
  - MUSCULAR WEAKNESS [None]
  - STOMATITIS [None]
  - WHITE BLOOD CELL COUNT INCREASED [None]
